FAERS Safety Report 17099726 (Version 1)
Quarter: 2019Q4

REPORT INFORMATION
  Report Type: Spontaneous
  Country: US (occurrence: US)
  Receive Date: 20191106
  Receipt Date: 20191106
  Transmission Date: 20200122
  Serious: Yes (Hospitalization)
  Sender: FDA-Public Use
  Company Number: None

PATIENT
  Age: 62 Year
  Sex: Female

DRUGS (1)
  1. ZARXIO [Suspect]
     Active Substance: FILGRASTIM-SNDZ
     Dosage: ?          OTHER STRENGTH:300MCG/0.5ML;OTHER FREQUENCY:ON DAYS 3,4 AND 5;?
     Route: 058
     Dates: start: 201910

REACTIONS (2)
  - Bone pain [None]
  - Myalgia [None]

NARRATIVE: CASE EVENT DATE: 20191001
